FAERS Safety Report 5922381-X (Version None)
Quarter: 2008Q4

REPORT INFORMATION
  Report Type: 
  Country: None (occurrence: None)
  Receive Date: 20081001
  Receipt Date: 20080919
  Transmission Date: 20090506
  Serious: Yes (Other)
  Sender: FDA-Public Use
  Company Number: AEUSA200800149

PATIENT
  Age: 36 Year
  Sex: Male
  Weight: 77.1115 kg

DRUGS (7)
  1. GAMUNEX [Suspect]
     Indication: AMYOTROPHIC LATERAL SCLEROSIS
     Dosage: 1 G/KG; 1X; IV
     Route: 042
     Dates: start: 20080528, end: 20080530
  2. GAMUNEX [Suspect]
     Indication: MOTOR NEURONE DISEASE
     Dosage: 1 G/KG; 1X; IV
     Route: 042
     Dates: start: 20080528, end: 20080530
  3. IBUPROFEN (CON.) [Concomitant]
  4. TYLENOL /00020001/ (CON.) [Concomitant]
  5. NEURONTIN (CON.) [Concomitant]
  6. RILUTEK (CON.) [Concomitant]
  7. MOTRIN (CON.) [Concomitant]

REACTIONS (1)
  - HEPATITIS C [None]
